FAERS Safety Report 15059717 (Version 1)
Quarter: 2018Q2

REPORT INFORMATION
  Report Type: Spontaneous
  Country: US (occurrence: US)
  Receive Date: 20180625
  Receipt Date: 20180625
  Transmission Date: 20180711
  Serious: No
  Sender: FDA-Public Use
  Company Number: US-SA-2018SA153657

PATIENT
  Age: 59 Year
  Sex: Female

DRUGS (2)
  1. TOUJEO [Suspect]
     Active Substance: INSULIN GLARGINE
     Dosage: 31 U, QD
  2. TOUJEO [Suspect]
     Active Substance: INSULIN GLARGINE
     Indication: TYPE 2 DIABETES MELLITUS
     Dosage: 7 U, QD
     Dates: start: 20180419

REACTIONS (3)
  - Drug dose omission [Unknown]
  - Glucose tolerance increased [Recovered/Resolved]
  - Injection site haemorrhage [Recovered/Resolved]
